FAERS Safety Report 5179709-0 (Version None)
Quarter: 2006Q4

REPORT INFORMATION
  Report Type: 
  Country: None (occurrence: None)
  Receive Date: 20061211
  Receipt Date: 20061128
  Transmission Date: 20070319
  Serious: Yes (Hospitalization)
  Sender: FDA-Public Use
  Company Number: 2006149922

PATIENT
  Sex: Male

DRUGS (2)
  1. BEXTRA [Suspect]
     Dates: start: 20000401
  2. VIOXX [Suspect]
     Dates: start: 20000401

REACTIONS (1)
  - CEREBROVASCULAR ACCIDENT [None]
